FAERS Safety Report 18904202 (Version 2)
Quarter: 2021Q2

REPORT INFORMATION
  Report Type: Spontaneous
  Country: US (occurrence: US)
  Receive Date: 20210217
  Receipt Date: 20210419
  Transmission Date: 20210717
  Serious: Yes (Death, Life-Threatening, Hospitalization)
  Sender: FDA-Public Use
  Company Number: US-AMNEAL PHARMACEUTICALS-2021-AMRX-00345

PATIENT
  Age: 10 Month
  Sex: Male

DRUGS (1)
  1. VIGABATRIN. [Suspect]
     Active Substance: VIGABATRIN
     Indication: EPILEPSY
     Dosage: 750 MILLIGRAM (250 MG IN MORNING AND 500 MG AT BEDTIME), DAILY
     Route: 048

REACTIONS (2)
  - Adverse event [Fatal]
  - Vomiting [Unknown]

NARRATIVE: CASE EVENT DATE: 20210202
